FAERS Safety Report 11657936 (Version 2)
Quarter: 2015Q4

REPORT INFORMATION
  Report Type: Report from Study
  Country: US (occurrence: US)
  Receive Date: 20151023
  Receipt Date: 20151027
  Transmission Date: 20160304
  Serious: Yes (Other)
  Sender: FDA-Public Use
  Company Number: US-ABBVIE-15P-163-1336816-00

PATIENT
  Age: 24 Year
  Sex: Female
  Weight: 72.64 kg

DRUGS (1)
  1. LUPRON DEPOT [Suspect]
     Active Substance: LEUPROLIDE ACETATE
     Indication: ENDOMETRIOSIS
     Dosage: LUPRON VIAL
     Route: 058
     Dates: start: 2008, end: 2009

REACTIONS (5)
  - Endometriosis [Recovered/Resolved]
  - Pelvic pain [Not Recovered/Not Resolved]
  - Drug ineffective [Unknown]
  - Endometriosis [Not Recovered/Not Resolved]
  - Endometriosis [Unknown]

NARRATIVE: CASE EVENT DATE: 20100212
